FAERS Safety Report 5718959-9 (Version None)
Quarter: 2008Q2

REPORT INFORMATION
  Report Type: 
  Country: None (occurrence: None)
  Receive Date: 20080425
  Receipt Date: 20080418
  Transmission Date: 20081010
  Serious: Yes (Other)
  Sender: FDA-Public Use
  Company Number: JP-PFIZER INC-2008035499

PATIENT
  Age: 78 Year
  Sex: Female

DRUGS (2)
  1. DETRUSITOL SR [Suspect]
     Indication: HYPERTONIC BLADDER
     Dosage: DAILY DOSE:4MG
     Route: 048
  2. NORVASC [Concomitant]
     Route: 048

REACTIONS (3)
  - PYELONEPHRITIS [None]
  - URINARY RETENTION [None]
  - VESICOURETERIC REFLUX [None]
